FAERS Safety Report 25637666 (Version 3)
Quarter: 2025Q3

REPORT INFORMATION
  Report Type: Spontaneous
  Country: EU (occurrence: EU)
  Receive Date: 20250804
  Receipt Date: 20250912
  Transmission Date: 20251020
  Serious: Yes (Hospitalization, Other)
  Sender: AMGEN
  Company Number: EU-BAXTER-2025BAX018838

PATIENT
  Age: 43 Year
  Sex: Female
  Weight: 50 kg

DRUGS (6)
  1. BEVACIZUMAB [Suspect]
     Active Substance: BEVACIZUMAB
     Indication: Ovarian cancer
     Dosage: 10 MG/KG, EVERY 2 WK
     Route: 040
     Dates: start: 20250103, end: 20250703
  2. DOXORUBICIN [Suspect]
     Active Substance: DOXORUBICIN
     Indication: Ovarian cancer
     Dosage: 30 MG/M2, EVERY 4 WK
     Route: 040
     Dates: start: 20250103, end: 20250206
  3. DOXORUBICIN [Suspect]
     Active Substance: DOXORUBICIN
     Dosage: 24 MG/M2, EVERY 4 WK
     Route: 040
     Dates: start: 20250306, end: 20250703
  4. MIRVETUXIMAB SORAVTANSINE [Suspect]
     Active Substance: MIRVETUXIMAB SORAVTANSINE
     Indication: Ovarian cancer
     Route: 065
  5. CARBOPLATIN [Suspect]
     Active Substance: CARBOPLATIN
     Indication: Ovarian cancer
     Dosage: 5AUC EVERY 4 WK
     Route: 040
     Dates: start: 20250103, end: 20250206
  6. CARBOPLATIN [Suspect]
     Active Substance: CARBOPLATIN
     Dosage: 4AUC, EVERY 4 WEEKS
     Route: 040
     Dates: start: 20250306, end: 20250703

REACTIONS (4)
  - Pancytopenia [Recovered/Resolved]
  - Anaemia [Unknown]
  - Thrombocytopenia [Unknown]
  - Neutrophil count decreased [Unknown]

NARRATIVE: CASE EVENT DATE: 20250716
